FAERS Safety Report 8486347-0 (Version None)
Quarter: 2012Q3

REPORT INFORMATION
  Report Type: 
  Country: None (occurrence: None)
  Receive Date: 20120703
  Receipt Date: 20120628
  Transmission Date: 20120928
  Serious: Yes (Other)
  Sender: FDA-Public Use
  Company Number: US-GLAXOSMITHKLINE-A0982703A

PATIENT
  Sex: Female

DRUGS (2)
  1. VENTOLIN [Concomitant]
  2. ADVAIR DISKUS 100/50 [Suspect]
     Indication: CHRONIC OBSTRUCTIVE PULMONARY DISEASE
     Dosage: 1PUFF TWICE PER DAY
     Route: 055
     Dates: start: 20090101

REACTIONS (5)
  - ARTHRALGIA [None]
  - MOVEMENT DISORDER [None]
  - VISUAL ACUITY REDUCED [None]
  - DRUG INEFFECTIVE [None]
  - PAIN [None]
